FAERS Safety Report 8490882-9 (Version None)
Quarter: 2012Q2

REPORT INFORMATION
  Report Type: 
  Country: None (occurrence: None)
  Receive Date: 20120628
  Receipt Date: 20120628
  Transmission Date: 20120825
  Serious: Yes (Life-Threatening, Hospitalization, Disabling, Other)
  Sender: FDA-Public Use
  Company Number: None

PATIENT
  Sex: Female
  Weight: 58.9676 kg

DRUGS (4)
  1. DEPO-PROVERA [Suspect]
     Indication: CONTRACEPTION
     Dosage: 1X 3 MONTHS
     Dates: start: 20100601
  2. DEPO-PROVERA [Suspect]
     Indication: CONTRACEPTION
     Dosage: 1X 3 MONTHS
     Dates: start: 20091201
  3. DEPO-PROVERA [Suspect]
     Indication: CONTRACEPTION
     Dosage: 1X 3 MONTHS
     Dates: start: 20111001
  4. DEPO-PROVERA [Suspect]
     Indication: CONTRACEPTION
     Dosage: 1X 3 MONTHS
     Dates: start: 20090501

REACTIONS (4)
  - BREAST CANCER [None]
  - ABDOMINAL PAIN [None]
  - OVARIAN CYST [None]
  - MENORRHAGIA [None]
